FAERS Safety Report 7956363-3 (Version None)
Quarter: 2011Q4

REPORT INFORMATION
  Report Type: 
  Country: None (occurrence: None)
  Receive Date: 20111205
  Receipt Date: 20111129
  Transmission Date: 20120403
  Serious: Yes (Hospitalization)
  Sender: FDA-Public Use
  Company Number: ZA-PFIZER INC-2011293025

PATIENT
  Age: 56 Year
  Sex: Male

DRUGS (4)
  1. ZOFER [Concomitant]
     Indication: ANTIEMETIC SUPPORTIVE CARE
     Dosage: 8 MG, UNK
  2. CHLORPROPAMIDE [Concomitant]
     Indication: ANTIEMETIC SUPPORTIVE CARE
     Dosage: 10 MG, UNK
  3. SUTENT [Suspect]
     Indication: METASTATIC RENAL CELL CARCINOMA
     Dosage: 50 MG, UNK
     Route: 048
  4. KYTRIL [Concomitant]
     Indication: ANTIEMETIC SUPPORTIVE CARE
     Dosage: 2 MG, UNK

REACTIONS (4)
  - JAUNDICE [None]
  - GAMMA-GLUTAMYLTRANSFERASE INCREASED [None]
  - BLOOD PRESSURE INCREASED [None]
  - BALANCE DISORDER [None]
